FAERS Safety Report 9053565 (Version 1)
Quarter: 2013Q1

REPORT INFORMATION
  Report Type: Spontaneous
  Country: US (occurrence: None)
  Receive Date: 20130201
  Receipt Date: 20130201
  Transmission Date: 20140127
  Serious: Yes (Other)
  Sender: FDA-Public Use
  Company Number: None

PATIENT
  Age: 10 Year
  Sex: Female
  Weight: 51.26 kg

DRUGS (1)
  1. MALATHION [Suspect]
     Indication: LICE INFESTATION
     Dosage: 1 BOTTLE 8-12 HOURS TOP
     Route: 065
     Dates: start: 20121224, end: 20121224

REACTIONS (7)
  - Crying [None]
  - Application site pain [None]
  - Application site erythema [None]
  - Application site scab [None]
  - Chemical injury [None]
  - Application site vesicles [None]
  - Application site exfoliation [None]
